FAERS Safety Report 7833887-0 (Version None)
Quarter: 2011Q4

REPORT INFORMATION
  Report Type: 
  Country: None (occurrence: None)
  Receive Date: 20111024
  Receipt Date: 20111014
  Transmission Date: 20120403
  Serious: Yes (Hospitalization)
  Sender: FDA-Public Use
  Company Number: DE-PFIZER INC-2011253580

PATIENT
  Age: 25 Year
  Sex: Male
  Weight: 76 kg

DRUGS (6)
  1. OMEPRAZOLE [Suspect]
     Dosage: 1) MAX. 600 MG DAILY
  2. VITAMIN B COMPLEX CAP [Concomitant]
  3. PANTOPRAZOLE SODIUM [Suspect]
     Indication: INTENTIONAL DRUG MISUSE
     Dosage: MAX: 56 TABS.
     Dates: start: 20111013, end: 20111013
  4. IBUPROFEN [Suspect]
     Dosage: APPROX. 8 G DAILY
  5. TILIDINE PHOSPHATE, NALOXONE HCL [Suspect]
     Dosage: MAX. 20 TABLETS DAILY (100/8 MG)
  6. GABAPENTIN [Suspect]
     Dosage: MAX. 9,9 G DAILY

REACTIONS (7)
  - PUPILLARY REFLEX IMPAIRED [None]
  - SOMNOLENCE [None]
  - HEADACHE [None]
  - DIZZINESS [None]
  - SUICIDE ATTEMPT [None]
  - FLUSHING [None]
  - INTENTIONAL OVERDOSE [None]
